FAERS Safety Report 24527329 (Version 1)
Quarter: 2024Q4

REPORT INFORMATION
  Report Type: Spontaneous
  Country: HU (occurrence: HU)
  Receive Date: 20241021
  Receipt Date: 20241021
  Transmission Date: 20250115
  Serious: Yes (Other)
  Sender: SANDOZ
  Company Number: HU-SANDOZ-SDZ2024HU087942

PATIENT
  Sex: Male

DRUGS (1)
  1. HYRIMOZ [Suspect]
     Active Substance: ADALIMUMAB-ADAZ
     Indication: Rheumatic disorder
     Dosage: UNK
     Route: 065
     Dates: start: 202107

REACTIONS (10)
  - Deafness [Unknown]
  - Skin cancer [Unknown]
  - Gait disturbance [Unknown]
  - Balance disorder [Unknown]
  - Nerve injury [Unknown]
  - Onychoclasis [Unknown]
  - Dry skin [Unknown]
  - Dizziness [Unknown]
  - Rash [Unknown]
  - Urinary tract infection [Unknown]
